FAERS Safety Report 7440852-4 (Version None)
Quarter: 2011Q2

REPORT INFORMATION
  Report Type: 
  Country: None (occurrence: None)
  Receive Date: 20110427
  Receipt Date: 20090930
  Transmission Date: 20111010
  Serious: Yes (Hospitalization, Other)
  Sender: FDA-Public Use
  Company Number: US-BAYER-200934797NA

PATIENT
  Age: 45 Year
  Sex: Male
  Weight: 98.413 kg

DRUGS (27)
  1. DEMEROL [Concomitant]
     Indication: PRODUCT USED FOR UNKNOWN INDICATION
     Dosage: 25 MG, UNK
     Route: 042
     Dates: start: 20071013
  2. CIPRO [Concomitant]
     Indication: PRODUCT USED FOR UNKNOWN INDICATION
     Dosage: 500 MG, BID
  3. LEVOPHED [Concomitant]
     Indication: PRODUCT USED FOR UNKNOWN INDICATION
     Dosage: 16 MCG/ML, UNK
     Route: 042
     Dates: start: 20071013
  4. MYLICON [Concomitant]
     Dosage: 80 MG, TID
     Route: 048
  5. LOVENOX [Concomitant]
     Dosage: 30 MG, QD
     Route: 058
  6. MORPHINE [Concomitant]
     Dosage: 3 TO 4MG, EVERY TWO HOUR
     Route: 042
  7. METHOTREXATE [Concomitant]
     Indication: PRODUCT USED FOR UNKNOWN INDICATION
     Dosage: 25 MG, OW
     Route: 030
  8. PROTAMINE SULFATE [Concomitant]
     Indication: PRODUCT USED FOR UNKNOWN INDICATION
     Dosage: 50 MG, UNK
     Route: 042
     Dates: start: 20071013
  9. VERSED [Concomitant]
     Indication: PRODUCT USED FOR UNKNOWN INDICATION
     Dosage: 4 MG, UNK
     Route: 042
     Dates: start: 20071013
  10. DRONABINOL [Concomitant]
     Indication: NAUSEA
     Dosage: 5 MG, TID
     Route: 048
  11. PHENYLEPHRINE HCL [Concomitant]
     Indication: BLOOD PRESSURE MANAGEMENT
     Dosage: 40 ?G, PRE-OPERATIVELY
     Route: 042
  12. DRONABINOL [Concomitant]
     Indication: DECREASED APPETITE
  13. RIFAMPIN [Concomitant]
     Indication: PRODUCT USED FOR UNKNOWN INDICATION
     Dosage: UNK
     Dates: start: 20071011
  14. VANCOMYCIN [Concomitant]
     Indication: PRODUCT USED FOR UNKNOWN INDICATION
     Dosage: UNK
     Dates: start: 20071011
  15. XANAX [Concomitant]
     Indication: ANXIETY
     Dosage: 0.25 MG, UNK
     Dates: start: 20071013
  16. CEFEPIME [Concomitant]
     Indication: STAPHYLOCOCCUS TEST POSITIVE
     Dosage: 1 G, UNK
     Route: 042
     Dates: start: 20071008
  17. VANCOMYCIN [Concomitant]
     Dosage: EVERY 12 HOURS
     Route: 042
     Dates: start: 20071013
  18. LASIX [Concomitant]
     Indication: PRODUCT USED FOR UNKNOWN INDICATION
     Dosage: 40 MG, UNK
     Route: 042
     Dates: start: 20071013
  19. METHADONE [Concomitant]
     Dosage: 30 MG, QD
  20. TRASYLOL [Suspect]
     Indication: MITRAL VALVE REPLACEMENT
     Dosage: 200CC
     Dates: start: 20071013
  21. ALBUMIN (HUMAN) [Concomitant]
     Indication: PRODUCT USED FOR UNKNOWN INDICATION
     Dosage: UNK
     Dates: start: 20071013
  22. COUMADIN [Concomitant]
     Indication: DEEP VEIN THROMBOSIS
     Dosage: UNK
     Route: 048
     Dates: start: 20070101
  23. DELTASONE [Concomitant]
     Dosage: 30 MG, QD
     Route: 048
  24. SOLU-CORTEF [Concomitant]
     Indication: PRODUCT USED FOR UNKNOWN INDICATION
     Dosage: 50 MG, UNK
     Route: 042
     Dates: start: 20071013, end: 20071017
  25. MEROPENEM [Concomitant]
     Indication: PRODUCT USED FOR UNKNOWN INDICATION
     Dosage: UNK
     Dates: start: 20071013
  26. FLAGYL [Concomitant]
     Indication: STAPHYLOCOCCUS TEST POSITIVE
     Dosage: 500 MG, UNK
     Route: 042
     Dates: start: 20071008
  27. ATIVAN [Concomitant]
     Dosage: 0.5 MG TO 2 MG, EVERY FOUR HOURS
     Route: 042

REACTIONS (11)
  - SEPSIS [None]
  - FEAR OF DEATH [None]
  - PAIN [None]
  - DEPRESSION [None]
  - RENAL INJURY [None]
  - INJURY [None]
  - RENAL FAILURE [None]
  - MULTI-ORGAN FAILURE [None]
  - EMOTIONAL DISTRESS [None]
  - ANXIETY [None]
  - NERVOUSNESS [None]
